FAERS Safety Report 18136279 (Version 5)
Quarter: 2020Q4

REPORT INFORMATION
  Report Type: Report from Study
  Country: US (occurrence: US)
  Receive Date: 20200811
  Receipt Date: 20201128
  Transmission Date: 20210113
  Serious: No
  Sender: FDA-Public Use
  Company Number: NVSC2020US222556

PATIENT
  Age: 52 Year
  Sex: Male
  Weight: 150.13 kg

DRUGS (2)
  1. ENTRESTO [Suspect]
     Active Substance: SACUBITRIL\VALSARTAN
     Route: 048
  2. ENTRESTO [Suspect]
     Active Substance: SACUBITRIL\VALSARTAN
     Indication: PRODUCT USED FOR UNKNOWN INDICATION
     Dosage: UNK
     Route: 048
     Dates: start: 20200801

REACTIONS (10)
  - Heart rate increased [Unknown]
  - Energy increased [Unknown]
  - Weight decreased [Unknown]
  - Pollakiuria [Unknown]
  - Hypotension [Unknown]
  - Blood glucose decreased [Unknown]
  - Hypertension [Unknown]
  - Fatigue [Unknown]
  - Feeling abnormal [Unknown]
  - Clumsiness [Unknown]

NARRATIVE: CASE EVENT DATE: 20200807
